FAERS Safety Report 25831091 (Version 1)
Quarter: 2025Q3

REPORT INFORMATION
  Report Type: Spontaneous
  Country: US (occurrence: US)
  Receive Date: 20250922
  Receipt Date: 20250922
  Transmission Date: 20251021
  Serious: No
  Sender: MYLAN
  Company Number: US-MYLANLABS-2025M1077945

PATIENT
  Sex: Female
  Weight: 54.43 kg

DRUGS (2)
  1. ESTRADIOL TRANSDERMAL SYSTEM [Suspect]
     Active Substance: ESTRADIOL
     Indication: Product used for unknown indication
     Dosage: 0.0375 MILLIGRAM, QD (PER DAY, ONCE WEEKLY)
     Dates: start: 202508
  2. PROGESTERONE [Concomitant]
     Active Substance: PROGESTERONE

REACTIONS (4)
  - Application site erythema [Unknown]
  - Application site irritation [Unknown]
  - Application site mass [Unknown]
  - Product adhesion issue [Unknown]
